FAERS Safety Report 7772042-X (Version None)
Quarter: 2011Q3

REPORT INFORMATION
  Report Type: 
  Country: None (occurrence: None)
  Receive Date: 20110922
  Receipt Date: 20100809
  Transmission Date: 20111222
  Serious: No
  Sender: FDA-Public Use
  Company Number: US-ASTRAZENECA-2010SE37377

PATIENT
  Age: 28 Year
  Sex: Female

DRUGS (3)
  1. CYMBALTA [Concomitant]
  2. CLONAZEPAM [Concomitant]
  3. SEROQUEL XR [Suspect]
     Indication: BIPOLAR DISORDER
     Route: 048
     Dates: start: 20090101, end: 20100701

REACTIONS (7)
  - SOMNAMBULISM [None]
  - SLEEP-RELATED EATING DISORDER [None]
  - DIARRHOEA [None]
  - SLEEP TALKING [None]
  - HALLUCINATION [None]
  - NAUSEA [None]
  - FLANK PAIN [None]
